FAERS Safety Report 6870126-1 (Version None)
Quarter: 2010Q3

REPORT INFORMATION
  Report Type: 
  Country: None (occurrence: None)
  Receive Date: 20100722
  Receipt Date: 20100721
  Transmission Date: 20110219
  Serious: Yes (Death, Other)
  Sender: FDA-Public Use
  Company Number: FR-PFIZER INC-2010083020

PATIENT
  Age: 35 Year
  Sex: Male

DRUGS (1)
  1. SERTRALINE HCL [Suspect]
     Dosage: UNK

REACTIONS (4)
  - COMPLETED SUICIDE [None]
  - DISTURBANCE IN ATTENTION [None]
  - HOMICIDE [None]
  - SPEECH DISORDER [None]
